FAERS Safety Report 13910597 (Version 1)
Quarter: 2017Q3

REPORT INFORMATION
  Report Type: Spontaneous
  Country: US (occurrence: US)
  Receive Date: 20170825
  Receipt Date: 20170825
  Transmission Date: 20171127
  Serious: Yes (Hospitalization, Disabling)
  Sender: FDA-Public Use
  Company Number: None

PATIENT
  Sex: Male
  Weight: 85.5 kg

DRUGS (1)
  1. DIVALPROEX SODIUM DR [Suspect]
     Active Substance: DIVALPROEX SODIUM
     Indication: CONVULSION PROPHYLAXIS
     Dates: start: 20170623, end: 20170624

REACTIONS (4)
  - Incoherent [None]
  - Cough [None]
  - Pneumonia aspiration [None]
  - Brain stem stroke [None]

NARRATIVE: CASE EVENT DATE: 20170624
